FAERS Safety Report 25445911 (Version 1)
Quarter: 2025Q2

REPORT INFORMATION
  Report Type: Spontaneous
  Country: US (occurrence: US)
  Receive Date: 20250617
  Receipt Date: 20250617
  Transmission Date: 20250717
  Serious: No
  Sender: BAYER HEALTHCARE LLC
  Company Number: US-BAYER-2025A080239

PATIENT

DRUGS (1)
  1. CLARITIN [Suspect]
     Active Substance: LORATADINE
     Route: 048

REACTIONS (1)
  - Urticaria [Unknown]
